FAERS Safety Report 6278796-6 (Version None)
Quarter: 2009Q3

REPORT INFORMATION
  Report Type: 
  Country: None (occurrence: None)
  Receive Date: 20090723
  Receipt Date: 20090708
  Transmission Date: 20100115
  Serious: Yes (Hospitalization)
  Sender: FDA-Public Use
  Company Number: IT-BIOGENIDEC-2009BI016244

PATIENT
  Age: 38 Year
  Sex: Female

DRUGS (3)
  1. TYSABRI [Suspect]
     Indication: RELAPSING-REMITTING MULTIPLE SCLEROSIS
     Route: 042
     Dates: start: 20081218, end: 20090422
  2. SENNOSIDE [Concomitant]
     Indication: CONSTIPATION
     Dates: start: 20090220, end: 20090422
  3. MACROGOL 4000 [Concomitant]
     Indication: CONSTIPATION
     Dates: start: 20090220, end: 20090422

REACTIONS (1)
  - GRAND MAL CONVULSION [None]
